FAERS Safety Report 5576584-7 (Version None)
Quarter: 2007Q4

REPORT INFORMATION
  Report Type: 
  Country: None (occurrence: None)
  Receive Date: 20071228
  Receipt Date: 20071031
  Transmission Date: 20080405
  Serious: No
  Sender: FDA-Public Use
  Company Number: A0690762A

PATIENT
  Age: 62 Year
  Sex: Male

DRUGS (6)
  1. FLOVENT [Suspect]
     Dosage: 2PUFF TWICE PER DAY
     Route: 055
     Dates: start: 20070913
  2. LOTREL [Concomitant]
  3. ATENOLOL [Concomitant]
  4. ANAPRIL [Concomitant]
  5. HYDROXYZINE [Concomitant]
  6. PROCTOSOL-HC [Concomitant]

REACTIONS (1)
  - TONGUE BLACK HAIRY [None]
